FAERS Safety Report 6302220-8 (Version None)
Quarter: 2009Q3

REPORT INFORMATION
  Report Type: 
  Country: None (occurrence: None)
  Receive Date: 20090810
  Receipt Date: 20090731
  Transmission Date: 20100115
  Serious: Yes (Hospitalization)
  Sender: FDA-Public Use
  Company Number: US-BIOGENIDEC-2009BI019991

PATIENT
  Age: 76 Year
  Sex: Female

DRUGS (1)
  1. AVONEX [Suspect]
     Indication: MULTIPLE SCLEROSIS
     Route: 030
     Dates: start: 20080314, end: 20090626

REACTIONS (8)
  - CONCUSSION [None]
  - FALL [None]
  - FATIGUE [None]
  - FOOT FRACTURE [None]
  - HYPONATRAEMIA [None]
  - SKIN LACERATION [None]
  - TREMOR [None]
  - WHITE BLOOD CELL COUNT DECREASED [None]
